FAERS Safety Report 19809631 (Version 6)
Quarter: 2024Q1

REPORT INFORMATION
  Report Type: Other
  Country: CA (occurrence: None)
  Receive Date: 20210909
  Receipt Date: 20240321
  Transmission Date: 20240410
  Serious: No
  Sender: FDA-Public Use
  Company Number: CA-ROCHE-2786268

PATIENT
  Age: 37 Year
  Sex: Female

DRUGS (5)
  1. OCREVUS [Suspect]
     Active Substance: OCRELIZUMAB
     Indication: Relapsing-remitting multiple sclerosis
     Dosage: 300 MG AT DAY 0 AND 14, THEN 600 MG EVERY 6 MONTH
     Route: 042
     Dates: start: 20210301
  2. OCREVUS [Suspect]
     Active Substance: OCRELIZUMAB
     Dosage: 300 MG AT DAY 0 AND 14, THEN 600 MG EVERY 6 MONTH
     Route: 042
  3. CRANBERRY [Concomitant]
     Active Substance: CRANBERRY
  4. VYVANSE [Concomitant]
     Active Substance: LISDEXAMFETAMINE DIMESYLATE
  5. BACLOFEN [Concomitant]
     Active Substance: BACLOFEN

REACTIONS (13)
  - Erythema [Not Recovered/Not Resolved]
  - Oral herpes [Not Recovered/Not Resolved]
  - Nasopharyngitis [Recovering/Resolving]
  - COVID-19 [Recovered/Resolved]
  - Eye inflammation [Recovered/Resolved]
  - Urinary tract infection [Recovered/Resolved]
  - Osteoarthritis [Unknown]
  - Back pain [Unknown]
  - Sinusitis [Not Recovered/Not Resolved]
  - Skin laceration [Unknown]
  - Animal scratch [Unknown]
  - Impaired healing [Unknown]
  - Scar [Unknown]

NARRATIVE: CASE EVENT DATE: 20231018
